FAERS Safety Report 6386869-2 (Version None)
Quarter: 2009Q4

REPORT INFORMATION
  Report Type: 
  Country: None (occurrence: None)
  Receive Date: 20091002
  Receipt Date: 20090930
  Transmission Date: 20100525
  Serious: Yes (Hospitalization)
  Sender: FDA-Public Use
  Company Number: ES-EISAI INC.-E2090-00847-SPO-ES

PATIENT
  Age: 38 Year
  Sex: Male

DRUGS (1)
  1. ZONEGRAN [Suspect]
     Indication: EPILEPSY
     Route: 048
     Dates: start: 20080507, end: 20090310

REACTIONS (2)
  - HYPOGEUSIA [None]
  - HYPOSMIA [None]
